FAERS Safety Report 19295174 (Version 1)
Quarter: 2021Q2

REPORT INFORMATION
  Report Type: Spontaneous
  Country: NP (occurrence: NP)
  Receive Date: 20210524
  Receipt Date: 20210524
  Transmission Date: 20210717
  Serious: Yes (Death)
  Sender: FDA-Public Use
  Company Number: NP-AMNEAL PHARMACEUTICALS-2021-AMRX-01807

PATIENT
  Age: 82 Year
  Sex: Female

DRUGS (6)
  1. ADRENACLICK [Suspect]
     Active Substance: EPINEPHRINE
     Indication: ANAPHYLACTIC REACTION
     Dosage: 0.5 MILLIGRAM, SINGLE
     Route: 030
  2. ADRENACLICK [Suspect]
     Active Substance: EPINEPHRINE
     Dosage: 0.3 MILLIGRAM EVERY 3 MINUTES
     Route: 030
  3. ADRENACLICK [Suspect]
     Active Substance: EPINEPHRINE
     Dosage: CONTINUOUS INFUSION
     Route: 030
  4. HYDROCORTISONE. [Suspect]
     Active Substance: HYDROCORTISONE
     Indication: ANAPHYLACTIC REACTION
     Dosage: UNK
     Route: 042
  5. TILSET (ONDANSETRON HYDROCHLORIDE) [Suspect]
     Active Substance: ONDANSETRON HYDROCHLORIDE
     Indication: VOMITING
     Dosage: 4 MILLIGRAM, SINGLE
     Route: 042
  6. PHENIRAMINE [Suspect]
     Active Substance: PHENIRAMINE
     Indication: ANAPHYLACTIC REACTION
     Dosage: UNK
     Route: 042

REACTIONS (1)
  - Cardio-respiratory arrest [Fatal]
